FAERS Safety Report 6331729-6 (Version None)
Quarter: 2009Q3

REPORT INFORMATION
  Report Type: 
  Country: None (occurrence: None)
  Receive Date: 20090827
  Receipt Date: 20090819
  Transmission Date: 20100115
  Serious: Yes (Hospitalization)
  Sender: FDA-Public Use
  Company Number: US-AMGEN-QUU361081

PATIENT
  Sex: Male

DRUGS (5)
  1. ENBREL [Suspect]
     Indication: RHEUMATOID ARTHRITIS
     Route: 058
     Dates: start: 20080904, end: 20090719
  2. METHOTREXATE SODIUM [Concomitant]
     Route: 048
     Dates: start: 20080306
  3. PREDNISONE TAB [Concomitant]
     Route: 048
  4. INH [Concomitant]
     Route: 048
     Dates: start: 20080809
  5. SULFASALAZINE [Concomitant]
     Route: 048

REACTIONS (1)
  - BONE TUBERCULOSIS [None]
